FAERS Safety Report 19398724 (Version 13)
Quarter: 2023Q1

REPORT INFORMATION
  Report Type: Spontaneous
  Country: CA (occurrence: CA)
  Receive Date: 20210610
  Receipt Date: 20230117
  Transmission Date: 20230418
  Serious: Yes (Other)
  Sender: FDA-Public Use
  Company Number: CA-CELLTRION INC.-2021CA006353

PATIENT

DRUGS (19)
  1. INFLECTRA [Suspect]
     Active Substance: INFLIXIMAB-DYYB
     Indication: Crohn^s disease
     Dosage: 400 MG, 0, 2, 6 THEN EVERY 8 WEEKS
     Route: 042
     Dates: start: 20200610
  2. INFLECTRA [Suspect]
     Active Substance: INFLIXIMAB-DYYB
     Dosage: 400 MG, AT 0 WEEK DOSE
     Route: 042
     Dates: start: 20200610, end: 20200610
  3. INFLECTRA [Suspect]
     Active Substance: INFLIXIMAB-DYYB
     Dosage: 400 MG, AT 2 WEEK DOSE
     Route: 042
     Dates: start: 20200626, end: 20200626
  4. INFLECTRA [Suspect]
     Active Substance: INFLIXIMAB-DYYB
     Dosage: 400 MG, AT 6 WEEK DOSE
     Route: 042
     Dates: start: 20200724, end: 20200724
  5. INFLECTRA [Suspect]
     Active Substance: INFLIXIMAB-DYYB
     Dosage: 5 MG/KG, 0, 2, 6 WEEKS THEN EVERY 8 WEEKS, Q 0 WEEK DOSE (RE-INDUCTION)
     Route: 042
     Dates: start: 20200915, end: 20200915
  6. INFLECTRA [Suspect]
     Active Substance: INFLIXIMAB-DYYB
     Dosage: 5 MG/KG, Q (EVERY) 6 WEEKS (ROUND UP TO NEAREST HUNDRED)
     Route: 042
     Dates: start: 20201026, end: 20210526
  7. INFLECTRA [Suspect]
     Active Substance: INFLIXIMAB-DYYB
     Dosage: 5 MG/KG, Q (EVERY) 6 WEEKS (ROUND UP TO NEAREST HUNDRED)
     Route: 042
     Dates: start: 20210414
  8. INFLECTRA [Suspect]
     Active Substance: INFLIXIMAB-DYYB
     Dosage: 5 MG/KG, Q (EVERY) 6 WEEKS (ROUND UP TO NEAREST HUNDRED)
     Route: 042
     Dates: start: 20210526
  9. INFLECTRA [Suspect]
     Active Substance: INFLIXIMAB-DYYB
     Dosage: 5 MG/KG, EVERY 5 WEEKS
     Route: 042
     Dates: start: 20210630
  10. INFLECTRA [Suspect]
     Active Substance: INFLIXIMAB-DYYB
     Dosage: 5 MG/KG, EVERY 5 WEEKS
     Route: 042
     Dates: start: 20210630, end: 20211015
  11. INFLECTRA [Suspect]
     Active Substance: INFLIXIMAB-DYYB
     Dosage: 5 MG/KG, EVERY 5 WEEKS
     Route: 042
     Dates: start: 20211015
  12. INFLECTRA [Suspect]
     Active Substance: INFLIXIMAB-DYYB
     Dosage: 5 MG/KG, Q (EVERY) 6 WEEKS (ROUNDED TO NEAREST VIAL)
     Route: 042
     Dates: start: 20211125, end: 20220912
  13. INFLECTRA [Suspect]
     Active Substance: INFLIXIMAB-DYYB
     Dosage: 5 MG/KG, EVERY 6 WEEKS
     Route: 042
     Dates: start: 20220215
  14. INFLECTRA [Suspect]
     Active Substance: INFLIXIMAB-DYYB
     Dosage: 5 MG/KG, EVERY 6 WEEKS
     Route: 042
     Dates: start: 20220513
  15. INFLECTRA [Suspect]
     Active Substance: INFLIXIMAB-DYYB
     Dosage: 5 MG/KG, EVERY 6 WEEKS (ROUNDED TO NEAREST VIAL)
     Route: 042
     Dates: start: 20220620
  16. INFLECTRA [Suspect]
     Active Substance: INFLIXIMAB-DYYB
     Dosage: 5 MG/KG, EVERY 6 WEEKS (ROUNDED TO NEAREST VIAL)
     Route: 042
     Dates: start: 20220804
  17. INFLECTRA [Suspect]
     Active Substance: INFLIXIMAB-DYYB
     Dosage: 5 MG/KG, EVERY 6 WEEKS (ROUNDED TO NEAREST VIAL)
     Route: 042
     Dates: start: 20220912
  18. INFLECTRA [Suspect]
     Active Substance: INFLIXIMAB-DYYB
     Dosage: 5MG/KG, EVERY 7 WEEKS
     Route: 042
     Dates: start: 20221028
  19. INFLECTRA [Suspect]
     Active Substance: INFLIXIMAB-DYYB
     Dosage: 5MG/KG, EVERY 7 WEEKS
     Route: 042
     Dates: start: 20221214

REACTIONS (12)
  - Abortion spontaneous [Recovered/Resolved]
  - Off label use [Unknown]
  - Off label use [Unknown]
  - Off label use [Unknown]
  - Intentional product use issue [Unknown]
  - Haemorrhoidal haemorrhage [Recovered/Resolved]
  - Condition aggravated [Recovering/Resolving]
  - Haemorrhoids [Unknown]
  - Blood pressure diastolic decreased [Not Recovered/Not Resolved]
  - Abdominal distension [Not Recovered/Not Resolved]
  - Erythema [Not Recovered/Not Resolved]
  - Pruritus [Recovering/Resolving]

NARRATIVE: CASE EVENT DATE: 20200610
